FAERS Safety Report 18078680 (Version 2)
Quarter: 2021Q2

REPORT INFORMATION
  Report Type: Spontaneous
  Country: CA (occurrence: CA)
  Receive Date: 20200727
  Receipt Date: 20210628
  Transmission Date: 20210717
  Serious: Yes (Hospitalization)
  Sender: FDA-Public Use
  Company Number: CA-TEVA-2020-CA-1805515

PATIENT
  Age: 59 Year
  Sex: Female
  Weight: 58 kg

DRUGS (15)
  1. SALBUTAMOL [Concomitant]
     Active Substance: ALBUTEROL
  2. METHOTRIMEPRAZINE [Concomitant]
     Active Substance: LEVOMEPROMAZINE
  3. ATORVASTATIN CALCIUM. [Concomitant]
     Active Substance: ATORVASTATIN CALCIUM
  4. BISOPROLOL [Concomitant]
     Active Substance: BISOPROLOL
  5. QUETIAPINE. [Concomitant]
     Active Substance: QUETIAPINE
  6. FOLIC ACID. [Concomitant]
     Active Substance: FOLIC ACID
  7. TEVA?SPIRONOLACTONE [Suspect]
     Active Substance: SPIRONOLACTONE
     Indication: ISCHAEMIC CARDIOMYOPATHY
  8. LANSOPRAZOLE. [Concomitant]
     Active Substance: LANSOPRAZOLE
  9. TEVA?CARBAMAZEPINE [Suspect]
     Active Substance: CARBAMAZEPINE
     Indication: POST STROKE EPILEPSY
     Dosage: 400 MILLIGRAM DAILY;
     Route: 048
  10. ADVAIR HFA [Concomitant]
     Active Substance: FLUTICASONE PROPIONATE\SALMETEROL XINAFOATE
  11. WARFARIN [Concomitant]
     Active Substance: WARFARIN
  12. TEVA?SPIRONOLACTONE [Suspect]
     Active Substance: SPIRONOLACTONE
     Indication: CARDIAC FAILURE CONGESTIVE
     Dosage: 25 MILLIGRAM DAILY;
     Route: 048
  13. RAMIPRIL. [Concomitant]
     Active Substance: RAMIPRIL
  14. SPIRIVA [Concomitant]
     Active Substance: TIOTROPIUM BROMIDE MONOHYDRATE
  15. VENLAFAXINE XR [Concomitant]
     Active Substance: VENLAFAXINE HYDROCHLORIDE

REACTIONS (6)
  - Balance disorder [Unknown]
  - Disorientation [Unknown]
  - Lethargy [Unknown]
  - Hyponatraemia [Unknown]
  - Dysarthria [Unknown]
  - Confusional state [Unknown]
